FAERS Safety Report 19642713 (Version 1)
Quarter: 2021Q3

REPORT INFORMATION
  Report Type: Spontaneous
  Country: BR (occurrence: BR)
  Receive Date: 20210730
  Receipt Date: 20210730
  Transmission Date: 20211014
  Serious: Yes (Life-Threatening)
  Sender: FDA-Public Use
  Company Number: BR-GUERBET-BR-20210142

PATIENT
  Age: 39 Year
  Sex: Female
  Weight: 60 kg

DRUGS (1)
  1. DOTAREM [Suspect]
     Active Substance: GADOTERATE MEGLUMINE
     Indication: MAGNETIC RESONANCE IMAGING ABDOMINAL
     Route: 042
     Dates: start: 20210427, end: 20210427

REACTIONS (7)
  - Lip swelling [Recovered/Resolved]
  - Rash [Recovered/Resolved]
  - Pruritus [Recovered/Resolved]
  - Hypotension [Recovered/Resolved]
  - Swelling of eyelid [Recovered/Resolved]
  - Dysphonia [Recovered/Resolved]
  - Cough [Recovered/Resolved]

NARRATIVE: CASE EVENT DATE: 20210427
